FAERS Safety Report 7492669-2 (Version None)
Quarter: 2011Q2

REPORT INFORMATION
  Report Type: 
  Country: None (occurrence: None)
  Receive Date: 20110519
  Receipt Date: 20110512
  Transmission Date: 20111010
  Serious: Yes (Hospitalization)
  Sender: FDA-Public Use
  Company Number: US-US-EMD SERONO, INC.-7059537

PATIENT
  Sex: Female

DRUGS (3)
  1. REBIF [Suspect]
     Indication: MULTIPLE SCLEROSIS
     Route: 058
     Dates: start: 20071022
  2. UNSPECIFIED PAIN MEDICATIONS [Concomitant]
     Indication: PAIN
  3. UNSPECIFIED MEDICATIONS [Concomitant]

REACTIONS (2)
  - MUSCULAR WEAKNESS [None]
  - FALL [None]
